FAERS Safety Report 21905641 (Version 2)
Quarter: 2023Q1

REPORT INFORMATION
  Report Type: Spontaneous
  Country: DE (occurrence: DE)
  Receive Date: 20230124
  Receipt Date: 20230131
  Transmission Date: 20230417
  Serious: Yes (Other)
  Sender: FDA-Public Use
  Company Number: DE-DSJP-DSE-2022-145914

PATIENT
  Age: 58 Year
  Sex: Female
  Weight: 110 kg

DRUGS (2)
  1. ENHERTU [Suspect]
     Active Substance: FAM-TRASTUZUMAB DERUXTECAN-NXKI
     Indication: Breast cancer
     Dosage: UNK UNK, CYCLIC
     Route: 065
     Dates: start: 20221010
  2. ENHERTU [Suspect]
     Active Substance: FAM-TRASTUZUMAB DERUXTECAN-NXKI
     Dosage: 5.4 MG/KG (594 MG) (3RD CYCLE)
     Route: 065
     Dates: start: 20221128

REACTIONS (1)
  - Injury corneal [Recovering/Resolving]

NARRATIVE: CASE EVENT DATE: 20221201
